FAERS Safety Report 12092620 (Version 1)
Quarter: 2016Q1

REPORT INFORMATION
  Report Type: Other
  Country: GB (occurrence: GB)
  Receive Date: 20160219
  Receipt Date: 20160219
  Transmission Date: 20160526
  Serious: Yes (Congenital Anomaly)
  Sender: FDA-Public Use
  Company Number: GB-CIPLA LTD.-2016GB01292

PATIENT

DRUGS (4)
  1. CETIRIZINE [Suspect]
     Active Substance: CETIRIZINE HYDROCHLORIDE
     Dosage: 10 MG, QD
     Route: 064
  2. SYMBICORT [Suspect]
     Active Substance: BUDESONIDE\FORMOTEROL FUMARATE DIHYDRATE
     Dosage: BUDESONIDE 200MICROGRAMS/DOSE / FORMOTEROL 6 MICROGRAMS/DOSE, 1 OR 2 PUFFS TWICE A DAY
     Route: 064
  3. BRICANYL [Suspect]
     Active Substance: TERBUTALINE SULFATE
     Dosage: 2 DF, AS NECESSARY,500MICROGRAMS/DOSE
     Route: 064
  4. MONTELUKAST [Suspect]
     Active Substance: MONTELUKAST SODIUM
     Dosage: 10 MG, UNK (AT NIGHT)
     Route: 064

REACTIONS (1)
  - Limb reduction defect [Not Recovered/Not Resolved]

NARRATIVE: CASE EVENT DATE: 20160115
